FAERS Safety Report 14570960 (Version 3)
Quarter: 2018Q2

REPORT INFORMATION
  Report Type: Spontaneous
  Country: US (occurrence: US)
  Receive Date: 20180226
  Receipt Date: 20180518
  Transmission Date: 20180711
  Serious: No
  Sender: FDA-Public Use
  Company Number: US-ASTRAZENECA-2018SE18439

PATIENT
  Age: 1036 Month
  Sex: Female
  Weight: 49.9 kg

DRUGS (2)
  1. SYMBICORT [Suspect]
     Active Substance: BUDESONIDE\FORMOTEROL FUMARATE DIHYDRATE
     Indication: DYSPNOEA
     Dosage: 160/4.5 MICROGRAMS, ONE TO TWO INHALATIONS, TWO TIMES DAILY AS REQUIRED AS REQUIRED
     Route: 055
     Dates: start: 201610
  2. SYMBICORT [Suspect]
     Active Substance: BUDESONIDE\FORMOTEROL FUMARATE DIHYDRATE
     Indication: SEASONAL ALLERGY
     Dosage: 160/4.5 MICROGRAMS, ONE TO TWO INHALATIONS, TWO TIMES DAILY AS REQUIRED AS REQUIRED
     Route: 055
     Dates: start: 201610

REACTIONS (11)
  - Feeling abnormal [Unknown]
  - Cough [Unknown]
  - Weight decreased [Unknown]
  - Anxiety [Unknown]
  - Off label use [Unknown]
  - Intentional dose omission [Unknown]
  - Intentional device misuse [Unknown]
  - Intentional product misuse [Unknown]
  - Device failure [Unknown]
  - Device malfunction [Unknown]
  - Product use in unapproved indication [Unknown]

NARRATIVE: CASE EVENT DATE: 201610
